FAERS Safety Report 4548552-5 (Version None)
Quarter: 2005Q1

REPORT INFORMATION
  Report Type: 
  Country: None (occurrence: None)
  Receive Date: 20041227
  Receipt Date: 20040917
  Transmission Date: 20050727
  Serious: No
  Sender: FDA-Public Use
  Company Number: 04P-163-0273899-00

PATIENT
  Age: 58 Year
  Sex: Male
  Weight: 90.7194 kg

DRUGS (11)
  1. HUMIRA [Suspect]
     Indication: RHEUMATOID ARTHRITIS
     Dosage: 40 MG, 1 IN 2 WK, SUBCUTANEOUS
     Route: 058
     Dates: start: 20040817
  2. ATENOLOL [Concomitant]
  3. ZOCOR [Concomitant]
  4. GEMFIBROZIL [Concomitant]
  5. FEXOFENADINE HYDROCHLORIDE [Concomitant]
  6. HYDROCHLOROTHIAZIDE [Concomitant]
  7. SULFASALAZINE [Concomitant]
  8. AZATHIOPRINE [Concomitant]
  9. OMEPRAZOLE [Concomitant]
  10. M.V.I. [Concomitant]
  11. CALCIUM CITRATE [Concomitant]

REACTIONS (3)
  - CHILLS [None]
  - DYSGEUSIA [None]
  - FATIGUE [None]
